FAERS Safety Report 25464152 (Version 1)
Quarter: 2025Q2

REPORT INFORMATION
  Report Type: Spontaneous
  Country: US (occurrence: US)
  Receive Date: 20250621
  Receipt Date: 20250621
  Transmission Date: 20250717
  Serious: Yes (Other)
  Sender: UNITED THERAPEUTICS
  Company Number: US-UNITED THERAPEUTICS-UNT-2025-020606

PATIENT
  Sex: Male

DRUGS (3)
  1. TYVASO [Suspect]
     Active Substance: TREPROSTINIL
     Indication: Product used for unknown indication
     Dosage: 90 ?G, QID
  2. TYVASO [Suspect]
     Active Substance: TREPROSTINIL
  3. OXYGEN [Suspect]
     Active Substance: OXYGEN
     Indication: Dyspnoea

REACTIONS (4)
  - Hypoxia [Unknown]
  - Drug tolerance decreased [Unknown]
  - Therapy non-responder [Unknown]
  - Wrong technique in product usage process [Unknown]
